FAERS Safety Report 7148454-4 (Version None)
Quarter: 2010Q4

REPORT INFORMATION
  Report Type: 
  Country: None (occurrence: None)
  Receive Date: 20101209
  Receipt Date: 20101126
  Transmission Date: 20110411
  Serious: Yes (Hospitalization, Other)
  Sender: FDA-Public Use
  Company Number: PHHY2010BR82055

PATIENT
  Sex: Male
  Weight: 84 kg

DRUGS (2)
  1. EXELON [Suspect]
     Indication: DEMENTIA ALZHEIMER'S TYPE
     Dosage: 1 DF, QD
     Route: 062
     Dates: start: 20100701, end: 20101001
  2. TENORETIC 100 [Concomitant]
     Indication: HYPERTENSION
     Dosage: 50/12.5 MG, 1TABLET
     Route: 048
     Dates: start: 20060101

REACTIONS (3)
  - DRAIN REMOVAL [None]
  - HYDROCEPHALUS [None]
  - LUMBAR PUNCTURE [None]
